FAERS Safety Report 12401723 (Version 3)
Quarter: 2016Q3

REPORT INFORMATION
  Report Type: Spontaneous
  Country: US (occurrence: US)
  Receive Date: 20160525
  Receipt Date: 20160719
  Transmission Date: 20161109
  Serious: Yes (Death, Other)
  Sender: FDA-Public Use
  Company Number: US-INSYS THERAPEUTICS, INC-INS201605-000217

PATIENT
  Age: 35 Year
  Sex: Male

DRUGS (3)
  1. ETHANOL [Suspect]
     Active Substance: ALCOHOL
  2. FENTANYL. [Suspect]
     Active Substance: FENTANYL
     Indication: PRODUCT USED FOR UNKNOWN INDICATION
     Route: 048
  3. FENTANYL. [Suspect]
     Active Substance: FENTANYL
     Route: 051

REACTIONS (4)
  - Intentional product use issue [Fatal]
  - Cardiac arrest [Unknown]
  - Death [Fatal]
  - Ventricular fibrillation [Unknown]

NARRATIVE: CASE EVENT DATE: 20141004
